FAERS Safety Report 19149896 (Version 2)
Quarter: 2021Q2

REPORT INFORMATION
  Report Type: Spontaneous
  Country: SA (occurrence: SA)
  Receive Date: 20210417
  Receipt Date: 20210428
  Transmission Date: 20210717
  Serious: Yes (Other)
  Sender: FDA-Public Use
  Company Number: SA-UCBSA-2021016147

PATIENT
  Age: 31 Year
  Sex: Male

DRUGS (4)
  1. VALPROIC ACID. [Suspect]
     Active Substance: VALPROIC ACID
     Dosage: 1 GRAM, 2X/DAY (BID)
  2. VALPROIC ACID. [Suspect]
     Active Substance: VALPROIC ACID
     Indication: PARTIAL SEIZURES
     Dosage: ON GRADUAL DOSE
  3. LEVETIRACETAM. [Suspect]
     Active Substance: LEVETIRACETAM
     Dosage: 1 GRAM, 2X/DAY (BID)
  4. LEVETIRACETAM. [Suspect]
     Active Substance: LEVETIRACETAM
     Indication: PARTIAL SEIZURES
     Dosage: ON GRADUAL DOSE
     Dates: start: 2018

REACTIONS (7)
  - Seizure [Unknown]
  - Withdrawal syndrome [Unknown]
  - Palpitations [Unknown]
  - Drug withdrawal headache [Unknown]
  - Writer^s cramp [Unknown]
  - Disorientation [Unknown]
  - Drug ineffective [Unknown]
